FAERS Safety Report 4419770-1 (Version None)
Quarter: 2004Q3

REPORT INFORMATION
  Report Type: 
  Country: None (occurrence: None)
  Receive Date: 20040804
  Receipt Date: 20040713
  Transmission Date: 20050211
  Serious: Yes (Death)
  Sender: FDA-Public Use
  Company Number: JP_040703826

PATIENT
  Age: 83 Year
  Sex: Male
  Weight: 53 kg

DRUGS (3)
  1. ZYPREXA [Suspect]
     Indication: DELIRIUM
     Dosage: 3.75 MG AT BEDTIME
     Dates: start: 20040127
  2. SERENACE (HALOPERIDOL) [Concomitant]
  3. RISPERDAL [Concomitant]

REACTIONS (3)
  - CARDIO-RESPIRATORY ARREST [None]
  - DEPRESSED LEVEL OF CONSCIOUSNESS [None]
  - VOMITING [None]
